FAERS Safety Report 25468012 (Version 2)
Quarter: 2025Q3

REPORT INFORMATION
  Report Type: Spontaneous
  Country: EU (occurrence: EU)
  Receive Date: 20250623
  Receipt Date: 20250711
  Transmission Date: 20251021
  Serious: Yes (Death, Other)
  Sender: MYLAN
  Company Number: EU-002147023-NVSC2025ES090329

PATIENT
  Age: 70 Year
  Sex: Male

DRUGS (4)
  1. MYCOPHENOLIC ACID [Suspect]
     Active Substance: MYCOPHENOLIC ACID
     Indication: Immunosuppressant drug therapy
  2. MYCOPHENOLIC ACID [Suspect]
     Active Substance: MYCOPHENOLIC ACID
     Indication: Renal transplant
  3. TACROLIMUS [Concomitant]
     Active Substance: TACROLIMUS
     Indication: Immunosuppressant drug therapy
  4. TACROLIMUS [Concomitant]
     Active Substance: TACROLIMUS
     Indication: Renal transplant

REACTIONS (9)
  - Intestinal ischaemia [Fatal]
  - COVID-19 pneumonia [Unknown]
  - Nocardiosis [Unknown]
  - Orthopnoea [Unknown]
  - Leukocytosis [Unknown]
  - Dyspnoea [Unknown]
  - Oliguria [Unknown]
  - Cough [Unknown]
  - Pleural effusion [Unknown]
